FAERS Safety Report 9690923 (Version 1)
Quarter: 2013Q4

REPORT INFORMATION
  Report Type: Spontaneous
  Country: US (occurrence: None)
  Receive Date: 20131114
  Receipt Date: 20131114
  Transmission Date: 20140711
  Serious: Yes (Hospitalization, Disabling)
  Sender: FDA-Public Use
  Company Number: None

PATIENT
  Age: 49 Year
  Sex: Female

DRUGS (5)
  1. ZOMETA [Suspect]
     Indication: BREAST CANCER METASTATIC
     Dosage: 4MG Q3MOS IV ?MONTHLY
     Route: 042
     Dates: start: 20101001, end: 20121006
  2. TAXAL [Concomitant]
  3. PEPCIL [Concomitant]
  4. DECADION [Concomitant]
  5. PALONOSETRON [Concomitant]

REACTIONS (1)
  - Femur fracture [None]
